FAERS Safety Report 25079606 (Version 1)
Quarter: 2025Q1

REPORT INFORMATION
  Report Type: Spontaneous
  Country: US (occurrence: None)
  Receive Date: 20250314
  Receipt Date: 20250314
  Transmission Date: 20250409
  Serious: Yes (Hospitalization)
  Sender: FDA-CTU
  Company Number: None

PATIENT
  Age: 56 Year
  Sex: Male

DRUGS (13)
  1. TIVICAY [Suspect]
     Active Substance: DOLUTEGRAVIR SODIUM
     Indication: HIV infection
     Dosage: 50 MG DAILY ORAL
     Route: 048
     Dates: start: 20231124
  2. DESCOVY [Suspect]
     Active Substance: EMTRICITABINE\TENOFOVIR ALAFENAMIDE FUMARATE
     Indication: HIV infection
     Dosage: 200 MG DAILY ORAL ?
     Route: 048
     Dates: start: 20231124
  3. METOPROLOL SUCCINATE [Concomitant]
     Active Substance: METOPROLOL SUCCINATE
  4. multivitamin tablet [Concomitant]
  5. SPIRONOLACTONE [Concomitant]
     Active Substance: SPIRONOLACTONE
  6. JARDIANCE [Concomitant]
     Active Substance: EMPAGLIFLOZIN
  7. TORSEMIDE [Concomitant]
     Active Substance: TORSEMIDE
  8. vitamin B complex capsule [Concomitant]
  9. AMIODARONE [Concomitant]
     Active Substance: AMIODARONE
  10. aspirin 81 EC low dose tablet [Concomitant]
     Dates: start: 20220524
  11. Dapsone 100 mg tablet [Concomitant]
     Dates: start: 20231124
  12. warfarin 10 mg tablet [Concomitant]
     Dates: start: 20220524, end: 20240717
  13. warfarin 2 mg tablet [Concomitant]
     Dates: start: 20230614, end: 20240531

REACTIONS (1)
  - Cerebrovascular accident [None]

NARRATIVE: CASE EVENT DATE: 20250310
